FAERS Safety Report 7363738-2 (Version None)
Quarter: 2011Q1

REPORT INFORMATION
  Report Type: 
  Country: None (occurrence: None)
  Receive Date: 20110321
  Receipt Date: 20110311
  Transmission Date: 20110831
  Serious: Yes (Other)
  Sender: FDA-Public Use
  Company Number: DE-AMGEN-DEUSP2011010807

PATIENT
  Age: 56 Year
  Sex: Male
  Weight: 93 kg

DRUGS (6)
  1. 5-FU                               /00098801/ [Concomitant]
     Indication: COLON CANCER METASTATIC
     Dosage: 2000 MG/M2, QWK
     Route: 042
     Dates: start: 20100526, end: 20110308
  2. VECTIBIX [Suspect]
     Indication: COLON CANCER METASTATIC
     Dosage: 558 MG, ONE TIME DOSE
     Route: 042
     Dates: start: 20100608
  3. URBASON                            /00049601/ [Concomitant]
     Indication: COLON CANCER METASTATIC
     Dosage: 96 MG, ONE TIME DOSE
     Route: 042
     Dates: start: 20100526
  4. IRINOTECAN [Concomitant]
     Indication: COLON CANCER METASTATIC
     Dosage: 127 MG, QWK
     Route: 042
     Dates: start: 20100526, end: 20110104
  5. FENISTIL [Concomitant]
     Indication: COLON CANCER METASTATIC
     Dosage: 4 MG, ONE TIME DOSE
     Route: 042
     Dates: start: 20100608, end: 20100608
  6. FOLINIC ACID [Concomitant]
     Indication: COLON CANCER METASTATIC
     Dosage: 500 MG/M2, QWK
     Route: 042
     Dates: start: 20100526, end: 20110104

REACTIONS (4)
  - SKIN TOXICITY [None]
  - STOMATITIS HAEMORRHAGIC [None]
  - PIGMENTATION DISORDER [None]
  - RASH PUSTULAR [None]
